FAERS Safety Report 18427214 (Version 4)
Quarter: 2020Q4

REPORT INFORMATION
  Report Type: Spontaneous
  Country: US (occurrence: US)
  Receive Date: 20201026
  Receipt Date: 20201223
  Transmission Date: 20210114
  Serious: No
  Sender: FDA-Public Use
  Company Number: US-PFIZER INC-2020412699

PATIENT
  Age: 77 Year
  Sex: Female

DRUGS (2)
  1. TAPAZOLE [Suspect]
     Active Substance: METHIMAZOLE
     Indication: BASEDOW^S DISEASE
     Dosage: UNK
  2. TAPAZOLE [Suspect]
     Active Substance: METHIMAZOLE
     Dosage: 3.75 MG, DAILY [USES 3/4 OF A 5MG TABLET, A HALF IN THE MORNING, AND A QUARTER AT NIGHT]

REACTIONS (4)
  - Intentional product misuse [Unknown]
  - Expired product administered [Unknown]
  - Drug ineffective [Unknown]
  - Illness [Unknown]
